FAERS Safety Report 20991407 (Version 1)
Quarter: 2022Q2

REPORT INFORMATION
  Report Type: Spontaneous
  Country: CN (occurrence: None)
  Receive Date: 20220622
  Receipt Date: 20220622
  Transmission Date: 20220721
  Serious: Yes (Other)
  Sender: FDA-Public Use
  Company Number: CN-ROCHE-3120914

PATIENT
  Age: 74 Year
  Sex: Female

DRUGS (28)
  1. RITUXIMAB [Suspect]
     Active Substance: RITUXIMAB
     Indication: Follicular lymphoma
     Dosage: R-CHOP FOR 6 CYCLES
     Route: 065
  2. RITUXIMAB [Suspect]
     Active Substance: RITUXIMAB
     Dosage: R2-CHOP FOR 6 CYCLES
     Route: 065
  3. RITUXIMAB [Suspect]
     Active Substance: RITUXIMAB
     Dosage: BR FOR 3 CYCLES
     Route: 065
  4. RITUXIMAB [Suspect]
     Active Substance: RITUXIMAB
     Dosage: R-GEMOX FOR 4 CYCLES
     Route: 065
  5. RITUXIMAB [Suspect]
     Active Substance: RITUXIMAB
     Dosage: R-GEMOX FOR 1 CYCLE
     Route: 065
  6. OBINUTUZUMAB [Suspect]
     Active Substance: OBINUTUZUMAB
     Indication: Follicular lymphoma
     Dosage: FOR 1 CYCLE
     Route: 042
  7. CYCLOPHOSPHAMIDE [Concomitant]
     Active Substance: CYCLOPHOSPHAMIDE
     Indication: Follicular lymphoma
     Dosage: R-CHOP FOR 6 CYCLES
  8. CYCLOPHOSPHAMIDE [Concomitant]
     Active Substance: CYCLOPHOSPHAMIDE
     Dosage: R2-CHOP FOR 6 CYCLES
  9. DOXORUBICIN [Concomitant]
     Active Substance: DOXORUBICIN
     Indication: Follicular lymphoma
     Dosage: R-CHOP FOR 6 CYCLES
  10. DOXORUBICIN [Concomitant]
     Active Substance: DOXORUBICIN
     Dosage: R2-CHOP FOR 6 CYCLES
  11. VINCRISTINE [Concomitant]
     Active Substance: VINCRISTINE
     Indication: Follicular lymphoma
     Dosage: R-CHOP FOR 6 CYCLES
  12. VINCRISTINE [Concomitant]
     Active Substance: VINCRISTINE
     Dosage: R2-CHOP FOR 6 CYCLES
  13. PREDNISONE [Concomitant]
     Active Substance: PREDNISONE
     Indication: Follicular lymphoma
     Dosage: R-CHOP FOR 6 CYCLES
  14. PREDNISONE [Concomitant]
     Active Substance: PREDNISONE
     Dosage: R2-CHOP FOR 6 CYCLES
  15. LENALIDOMIDE [Concomitant]
     Active Substance: LENALIDOMIDE
     Indication: Follicular lymphoma
     Dosage: R2-CHOP FOR 6 CYCLES
  16. LENALIDOMIDE [Concomitant]
     Active Substance: LENALIDOMIDE
     Dosage: R2-CHOP FOR 6 CYCLES
  17. BENDAMUSTINE [Concomitant]
     Active Substance: BENDAMUSTINE
     Indication: Follicular lymphoma
     Dosage: BR FOR 3 CYCLES
  18. GEMCITABINE [Concomitant]
     Active Substance: GEMCITABINE
     Indication: Follicular lymphoma
     Dosage: 4-CYCLES R-GEMOX
  19. GEMCITABINE [Concomitant]
     Active Substance: GEMCITABINE
     Dosage: R-GEMOX FOR 1 CYCLE
  20. OXALIPLATIN [Concomitant]
     Active Substance: OXALIPLATIN
     Indication: Follicular lymphoma
     Dosage: 4-CYCLES R-GEMOX
  21. OXALIPLATIN [Concomitant]
     Active Substance: OXALIPLATIN
     Dosage: R-GEMOX FOR 1 CYCLE
  22. ZANUBRUTINIB [Concomitant]
     Active Substance: ZANUBRUTINIB
     Indication: Follicular lymphoma
     Dosage: TREATMENT WITH 4-CYCLES R-GEMOX
  23. ZANUBRUTINIB [Concomitant]
     Active Substance: ZANUBRUTINIB
     Dosage: FOR 1 YEAR
  24. ZANUBRUTINIB [Concomitant]
     Active Substance: ZANUBRUTINIB
     Dosage: R-GEMOX FOR 1 CYCLE
  25. ETOPOSIDE [Concomitant]
     Active Substance: ETOPOSIDE
     Indication: Follicular lymphoma
     Dosage: FOR 1 CYCLE
  26. METHYLPREDNISOLONE [Concomitant]
     Active Substance: METHYLPREDNISOLONE
     Indication: Follicular lymphoma
     Dosage: FOR 1 CYCLE
  27. CYTARABINE [Concomitant]
     Active Substance: CYTARABINE
     Indication: Follicular lymphoma
  28. CISPLATIN [Concomitant]
     Active Substance: CISPLATIN
     Indication: Follicular lymphoma

REACTIONS (2)
  - Myelosuppression [Unknown]
  - Off label use [Unknown]
